FAERS Safety Report 19451151 (Version 1)
Quarter: 2021Q2

REPORT INFORMATION
  Report Type: Spontaneous
  Country: US (occurrence: US)
  Receive Date: 20210622
  Receipt Date: 20210622
  Transmission Date: 20210717
  Serious: Yes (Life-Threatening, Disabling)
  Sender: FDA-Public Use
  Company Number: None

PATIENT
  Age: 35 Year
  Sex: Female
  Weight: 56.25 kg

DRUGS (1)
  1. METRONIDAZOLE. [Suspect]
     Active Substance: METRONIDAZOLE
     Indication: BACTERIAL VAGINOSIS
     Dates: start: 20210128, end: 20210204

REACTIONS (17)
  - Nausea [None]
  - Visual impairment [None]
  - Heart rate increased [None]
  - Heart rate irregular [None]
  - Urticaria [None]
  - Anxiety [None]
  - Palpitations [None]
  - Gastrooesophageal reflux disease [None]
  - Depression [None]
  - Vagus nerve disorder [None]
  - Renal impairment [None]
  - Cortisol increased [None]
  - Gastritis [None]
  - Oesophagitis [None]
  - Autonomic neuropathy [None]
  - Feeling abnormal [None]
  - Tremor [None]

NARRATIVE: CASE EVENT DATE: 20210208
